FAERS Safety Report 19471078 (Version 2)
Quarter: 2022Q3

REPORT INFORMATION
  Report Type: Spontaneous
  Country: US (occurrence: US)
  Receive Date: 20210629
  Receipt Date: 20220802
  Transmission Date: 20221026
  Serious: Yes (Other)
  Sender: FDA-Public Use
  Company Number: US-IPCA LABORATORIES LIMITED-IPC-2021-US-001286

PATIENT

DRUGS (4)
  1. HYDROXYCHLOROQUINE [Suspect]
     Active Substance: HYDROXYCHLOROQUINE
     Indication: Chronic cutaneous lupus erythematosus
     Dosage: 200 MILLIGRAM, QD
     Route: 065
  2. VALSARTAN [Concomitant]
     Active Substance: VALSARTAN
     Indication: Hypertension
     Dosage: UNK
     Route: 065
  3. ALBUTEROL [Concomitant]
     Active Substance: ALBUTEROL
     Indication: Asthma
     Dosage: UNK
     Route: 065
  4. MOMETASONE AND FORMOTEROL [Concomitant]
     Indication: Asthma
     Dosage: UNK
     Route: 065

REACTIONS (14)
  - Cardiotoxicity [Recovering/Resolving]
  - Cardiomyopathy [Recovering/Resolving]
  - Cardiac failure [Recovering/Resolving]
  - Hypoxia [Recovering/Resolving]
  - Chronotropic incompetence [Recovering/Resolving]
  - Toxicity to various agents [Recovering/Resolving]
  - Dyspnoea exertional [Recovering/Resolving]
  - Fatigue [Recovering/Resolving]
  - Left ventricular dysfunction [Recovering/Resolving]
  - Dizziness [Recovering/Resolving]
  - Sinus bradycardia [Recovering/Resolving]
  - Left ventricular hypertrophy [Recovering/Resolving]
  - Left atrial enlargement [Recovering/Resolving]
  - Right atrial pressure increased [Recovering/Resolving]
